FAERS Safety Report 4617632-8 (Version None)
Quarter: 2005Q1

REPORT INFORMATION
  Report Type: 
  Country: None (occurrence: None)
  Receive Date: 20050322
  Receipt Date: 20050316
  Transmission Date: 20050727
  Serious: Yes (Other)
  Sender: FDA-Public Use
  Company Number: S05-USA-01424-01

PATIENT
  Age: 63 Year
  Sex: Female

DRUGS (7)
  1. THYROLAR-2 [Suspect]
     Indication: HYPOTHYROIDISM
     Dosage: 1 TABLET QD PO
     Route: 048
     Dates: start: 20050101
  2. NORVASC [Concomitant]
  3. WELLBUTRIN [Concomitant]
  4. PREMARIN [Concomitant]
  5. ALLEGRA [Concomitant]
  6. SOMA [Concomitant]
  7. KLONOPIN [Concomitant]

REACTIONS (1)
  - PANCREATITIS [None]
